FAERS Safety Report 22180716 (Version 1)
Quarter: 2023Q2

REPORT INFORMATION
  Report Type: Spontaneous
  Country: NO (occurrence: NO)
  Receive Date: 20230406
  Receipt Date: 20230406
  Transmission Date: 20230722
  Serious: Yes (Other)
  Sender: FDA-Public Use
  Company Number: None

PATIENT
  Age: 56 Year
  Sex: Female
  Weight: 73 kg

DRUGS (2)
  1. GADOBUTROL [Suspect]
     Active Substance: GADOBUTROL
     Indication: Magnetic resonance imaging
     Dosage: THE PATIENT REPORTS RECEIVING CONTRAST MEDIA BEFORE MRI SEVERAL TIMES
     Dates: start: 202007, end: 20210707
  2. CENTRUM ENERGY B VITAMINS AND MINERALS PLUS VITAMIN C + E [Concomitant]

REACTIONS (3)
  - Neuropathy peripheral [Recovered/Resolved with Sequelae]
  - Fatigue [Recovered/Resolved with Sequelae]
  - Memory impairment [Recovered/Resolved with Sequelae]

NARRATIVE: CASE EVENT DATE: 20200707
